FAERS Safety Report 20562109 (Version 2)
Quarter: 2022Q1

REPORT INFORMATION
  Report Type: Report from Study
  Country: US (occurrence: US)
  Receive Date: 20220307
  Receipt Date: 20220310
  Transmission Date: 20220423
  Serious: Yes (Life-Threatening, Other)
  Sender: FDA-Public Use
  Company Number: US-PFIZER INC-202200350624

PATIENT

DRUGS (4)
  1. PHENYTOIN [Suspect]
     Active Substance: PHENYTOIN
     Indication: Pancreatic carcinoma metastatic
     Dosage: 50 MG QD
     Route: 048
  2. SIROLIMUS [Suspect]
     Active Substance: SIROLIMUS
     Indication: Pancreatic carcinoma metastatic
     Dosage: 0.5 MG QD
     Route: 048
  3. RACEMETYROSINE [Suspect]
     Active Substance: RACEMETYROSINE
     Indication: Pancreatic carcinoma metastatic
     Dosage: 230 MG BID OR 460 MG BID
     Route: 048
  4. METHOXSALEN [Suspect]
     Active Substance: METHOXSALEN
     Indication: Pancreatic carcinoma metastatic
     Dosage: 10 MG QD
     Route: 048

REACTIONS (2)
  - Hypotension [Recovered/Resolved]
  - Abdominal pain [Recovered/Resolved]
